FAERS Safety Report 18581257 (Version 1)
Quarter: 2020Q4

REPORT INFORMATION
  Report Type: Spontaneous
  Country: US (occurrence: US)
  Receive Date: 20201204
  Receipt Date: 20201204
  Transmission Date: 20210114
  Serious: No
  Sender: FDA-Public Use
  Company Number: US-PERRIGO-20US014545

PATIENT
  Age: 55 Year
  Sex: Female
  Weight: 59.86 kg

DRUGS (2)
  1. DICLOFENAC SODIUM. [Suspect]
     Active Substance: DICLOFENAC SODIUM
     Indication: PAIN
     Dosage: TWO FINGER AMOUNT, TWICE
     Route: 061
     Dates: start: 20201006, end: 20201006
  2. DICLOFENAC SODIUM. [Suspect]
     Active Substance: DICLOFENAC SODIUM
     Dosage: TWO FINGER AMOUNT, SINGLE
     Route: 061
     Dates: start: 20201007, end: 20201007

REACTIONS (3)
  - Drug ineffective for unapproved indication [Unknown]
  - Product administered at inappropriate site [Recovered/Resolved]
  - Wrong technique in product usage process [Recovered/Resolved]

NARRATIVE: CASE EVENT DATE: 20201006
